FAERS Safety Report 15097137 (Version 6)
Quarter: 2018Q4

REPORT INFORMATION
  Report Type: Spontaneous
  Country: BR (occurrence: BR)
  Receive Date: 20180702
  Receipt Date: 20181204
  Transmission Date: 20190204
  Serious: Yes (Hospitalization, Other)
  Sender: FDA-Public Use
  Company Number: BR-GLAXOSMITHKLINE-BR2017GSK149341

PATIENT
  Age: 30 Year
  Sex: Female
  Weight: 60 kg

DRUGS (1)
  1. BENLYSTA [Suspect]
     Active Substance: BELIMUMAB
     Indication: SYSTEMIC LUPUS ERYTHEMATOSUS
     Dosage: 400 MG, UNK
     Dates: start: 20170920

REACTIONS (16)
  - Thrombosis [Unknown]
  - Inappropriate schedule of product administration [Not Recovered/Not Resolved]
  - Oedema peripheral [Unknown]
  - Urinary tract infection [Unknown]
  - Dysuria [Unknown]
  - Underdose [Unknown]
  - Weight increased [Unknown]
  - Depression [Unknown]
  - Herpes zoster [Unknown]
  - Circumstance or information capable of leading to medication error [Unknown]
  - Headache [Unknown]
  - Irritability [Unknown]
  - Alopecia [Unknown]
  - Skin lesion [Unknown]
  - Product dose omission [Unknown]
  - Product prescribing issue [Unknown]

NARRATIVE: CASE EVENT DATE: 20171017
